FAERS Safety Report 14316643 (Version 15)
Quarter: 2019Q2

REPORT INFORMATION
  Report Type: Report from Study
  Country: GB (occurrence: GB)
  Receive Date: 20171222
  Receipt Date: 20190617
  Transmission Date: 20190711
  Serious: Yes (Hospitalization, Other)
  Sender: FDA-Public Use
  Company Number: GB-ASPEN-GLO2017GB008662

PATIENT
  Age: 77 Year
  Sex: Male
  Weight: 90.6 kg

DRUGS (7)
  1. DEXAMETHASONE. [Suspect]
     Active Substance: DEXAMETHASONE
     Dosage: 20 MG, WEEKLY
     Route: 065
     Dates: start: 20180131, end: 20180221
  2. CO-AMOXICLAV [Concomitant]
     Active Substance: AMOXICILLIN\CLAVULANATE POTASSIUM
     Indication: PRODUCT USED FOR UNKNOWN INDICATION
     Dosage: 625 MG
     Route: 065
  3. DEXAMETHASONE. [Suspect]
     Active Substance: DEXAMETHASONE
     Indication: PLASMA CELL MYELOMA
     Dosage: 20 MG, WEEKLY
     Route: 065
     Dates: start: 20171123, end: 20171207
  4. DEXAMETHASONE. [Suspect]
     Active Substance: DEXAMETHASONE
     Dosage: 20 MG, WEEKLY
     Route: 065
     Dates: start: 20171228, end: 20171228
  5. DEXAMETHASONE. [Suspect]
     Active Substance: DEXAMETHASONE
     Dosage: 20 MG, WEEKLY
     Route: 065
     Dates: start: 20180105
  6. NASEPTIN [Concomitant]
     Active Substance: CHLORHEXIDINE HYDROCHLORIDE\NEOMYCIN SULFATE
     Indication: PRODUCT USED FOR UNKNOWN INDICATION
     Dosage: UNK
     Route: 065
  7. POMALIDOMIDE [Suspect]
     Active Substance: POMALIDOMIDE
     Indication: PLASMA CELL MYELOMA
     Dosage: 2 MG
     Route: 048

REACTIONS (11)
  - Neutropenia [Recovering/Resolving]
  - Anaemia [Recovered/Resolved]
  - Neutropenia [Not Recovered/Not Resolved]
  - Thrombocytopenia [Recovering/Resolving]
  - Neutropenic sepsis [Recovered/Resolved]
  - Alanine aminotransferase increased [Not Recovered/Not Resolved]
  - Hypophosphataemia [Recovered/Resolved]
  - Anaemia [Recovered/Resolved]
  - Neutropenic sepsis [Recovered/Resolved]
  - Leukopenia [Recovering/Resolving]
  - Thrombocytopenia [Recovered/Resolved]

NARRATIVE: CASE EVENT DATE: 20171205
